FAERS Safety Report 20083106 (Version 1)
Quarter: 2021Q4

REPORT INFORMATION
  Report Type: Spontaneous
  Country: DK (occurrence: DK)
  Receive Date: 20211117
  Receipt Date: 20211117
  Transmission Date: 20220303
  Serious: Yes (Hospitalization)
  Sender: FDA-Public Use
  Company Number: DK-JNJFOC-20060504271

PATIENT
  Age: 3 Year
  Sex: Female
  Weight: 20 kg

DRUGS (17)
  1. SEVOFLURANE [Suspect]
     Active Substance: SEVOFLURANE
     Indication: Anaesthesia
     Route: 065
  2. ACETAMINOPHEN [Suspect]
     Active Substance: ACETAMINOPHEN
     Indication: Pain prophylaxis
     Dosage: 500 MG DAY 4
     Route: 054
  3. ACETAMINOPHEN [Suspect]
     Active Substance: ACETAMINOPHEN
     Dosage: 1500 MG, 49-72 H AFTER ADMISSION
     Route: 054
  4. ACETAMINOPHEN [Suspect]
     Active Substance: ACETAMINOPHEN
     Dosage: 2000 MG, 25-48 H AFTER ADMISSION
     Route: 054
  5. ACETAMINOPHEN [Suspect]
     Active Substance: ACETAMINOPHEN
     Dosage: 3500 MG FIRST 24 H POST ADMISSION
     Route: 054
  6. CLEMIZOLE PENICILLIN [Concomitant]
     Active Substance: CLEMIZOLE PENICILLIN
     Indication: Product used for unknown indication
     Dosage: 2 X 10.6 IU, IV
     Route: 042
  7. ketobemidon [Concomitant]
     Indication: Product used for unknown indication
     Dosage: 0.5 MG, IM
     Route: 030
  8. DICLOFENAC [Concomitant]
     Active Substance: DICLOFENAC
     Indication: Product used for unknown indication
     Dosage: 25 MG, FIRST 24 H POST ADMISSION
     Route: 054
  9. DICLOFENAC [Concomitant]
     Active Substance: DICLOFENAC
     Dosage: 25 MG, DAY 4
     Route: 054
  10. DICLOFENAC [Concomitant]
     Active Substance: DICLOFENAC
     Dosage: 25 MG, 25-48 H POST ADMISSION
     Route: 054
  11. THIOPENTAL [Concomitant]
     Active Substance: THIOPENTAL
     Indication: Anaesthesia
     Route: 042
  12. DIAZEPAM [Concomitant]
     Active Substance: DIAZEPAM
     Indication: Sedation
     Route: 054
  13. METRONIDAZOLE [Concomitant]
     Active Substance: METRONIDAZOLE
     Indication: Product used for unknown indication
     Route: 042
  14. FENTANYL CITRATE [Concomitant]
     Active Substance: FENTANYL CITRATE
     Indication: Anaesthesia
     Route: 042
  15. GENTAMICIN [Concomitant]
     Active Substance: GENTAMICIN
     Indication: Product used for unknown indication
     Route: 042
  16. MORPHINE [Concomitant]
     Active Substance: MORPHINE
     Indication: Sedation
     Route: 054
  17. SUCCINYLCHOLINE [Concomitant]
     Active Substance: SUCCINYLCHOLINE
     Indication: Anaesthesia
     Route: 042

REACTIONS (2)
  - Prescribed overdose [Recovered/Resolved]
  - Hepatic failure [Recovered/Resolved]
